FAERS Safety Report 25832257 (Version 4)
Quarter: 2025Q4

REPORT INFORMATION
  Report Type: Spontaneous
  Country: US (occurrence: US)
  Receive Date: 20250922
  Receipt Date: 20251120
  Transmission Date: 20260119
  Serious: No
  Sender: PFIZER
  Company Number: US-PFIZER INC-202500184079

PATIENT
  Age: 38 Year
  Sex: Female
  Weight: 84.37 kg

DRUGS (1)
  1. BICILLIN L-A [Suspect]
     Active Substance: PENICILLIN G BENZATHINE
     Indication: Syphilis
     Dosage: 1.2 MILLION UNITS (GIVEN IN EACH GLUTEAL MUSCLE)
     Dates: start: 20250312

REACTIONS (2)
  - Recalled product administered [Not Recovered/Not Resolved]
  - Injection site pain [Not Recovered/Not Resolved]

NARRATIVE: CASE EVENT DATE: 20250312
